FAERS Safety Report 23643558 (Version 1)
Quarter: 2024Q1

REPORT INFORMATION
  Report Type: Report from Study
  Country: US (occurrence: US)
  Receive Date: 20240318
  Receipt Date: 20240318
  Transmission Date: 20240409
  Serious: Yes (Hospitalization)
  Sender: FDA-Public Use
  Company Number: US-002147023-NVSC2024US055882

PATIENT
  Sex: Male

DRUGS (1)
  1. PROMACTA [Suspect]
     Active Substance: ELTROMBOPAG OLAMINE
     Indication: Immune thrombocytopenia
     Route: 065

REACTIONS (6)
  - Cardiac disorder [Unknown]
  - Haematological infection [Unknown]
  - Eye infection [Unknown]
  - Asthenia [Unknown]
  - Muscle atrophy [Unknown]
  - Platelet count increased [Unknown]
